FAERS Safety Report 8514554-7 (Version None)
Quarter: 2012Q3

REPORT INFORMATION
  Report Type: 
  Country: None (occurrence: None)
  Receive Date: 20120717
  Receipt Date: 20120613
  Transmission Date: 20120928
  Serious: Yes (Other)
  Sender: FDA-Public Use
  Company Number: JP-009507513-1207JPN004256

PATIENT

DRUGS (1)
  1. FOSAMAX [Suspect]
     Route: 048
     Dates: start: 20060101, end: 20120501

REACTIONS (1)
  - FEMUR FRACTURE [None]
